FAERS Safety Report 12055126 (Version 1)
Quarter: 2016Q1

REPORT INFORMATION
  Report Type: Report from Study
  Country: US (occurrence: US)
  Receive Date: 20160209
  Receipt Date: 20160209
  Transmission Date: 20160526
  Serious: Yes (Other)
  Sender: FDA-Public Use
  Company Number: US-ABBVIE-15P-163-1503742-00

PATIENT
  Sex: Male

DRUGS (1)
  1. HUMIRA [Suspect]
     Active Substance: ADALIMUMAB
     Indication: PSORIATIC ARTHROPATHY
     Route: 058
     Dates: start: 2011

REACTIONS (4)
  - Pain in extremity [Recovered/Resolved]
  - Arthralgia [Recovering/Resolving]
  - Femur fracture [Recovered/Resolved]
  - Knee arthroplasty [Recovered/Resolved]
